FAERS Safety Report 5014381-1 (Version None)
Quarter: 2006Q2

REPORT INFORMATION
  Report Type: 
  Country: None (occurrence: None)
  Receive Date: 20060525
  Receipt Date: 20051017
  Transmission Date: 20061013
  Serious: Yes (Life-Threatening, Hospitalization)
  Sender: FDA-Public Use
  Company Number: 217977

PATIENT
  Age: 63 Year
  Sex: Male
  Weight: 86 kg

DRUGS (7)
  1. MABTHERA (RITUXIMAB) CONIC FOR SOLUTION FOR INFUSION [Suspect]
     Indication: B-CELL LYMPHOMA
     Dosage: 712 MG, SINGLE, INTRAVENOUS
     Route: 042
  2. CYCLOPHOSPHAMIDE [Concomitant]
  3. DOXORUBICIN HCL [Concomitant]
  4. VINCRISTINE [Concomitant]
  5. PREDNISONE TAB [Concomitant]
  6. ADRIBLASTIN (DOXORUBICIN/DOXORUBICIN HYDROCHLORIDE) [Concomitant]
  7. CYCLOPHOSPHAMIDE [Concomitant]

REACTIONS (12)
  - BLOOD LACTATE DEHYDROGENASE INCREASED [None]
  - BLOOD UREA INCREASED [None]
  - BONE MARROW FAILURE [None]
  - CARDIOVASCULAR INSUFFICIENCY [None]
  - CEREBRAL HAEMORRHAGE [None]
  - FLUID INTAKE REDUCED [None]
  - GENERAL PHYSICAL HEALTH DETERIORATION [None]
  - HAEMATOTOXICITY [None]
  - MUCOSAL INFLAMMATION [None]
  - ORAL INTAKE REDUCED [None]
  - PANCYTOPENIA [None]
  - RESPIRATORY DEPRESSION [None]
